FAERS Safety Report 16705527 (Version 1)
Quarter: 2019Q4

REPORT INFORMATION
  Report Type: Spontaneous
  Country: US (occurrence: US)
  Receive Date: 20190814
  Receipt Date: 20190814
  Transmission Date: 20200122
  Serious: Yes (Hospitalization)
  Sender: FDA-Public Use
  Company Number: None

PATIENT
  Age: 65 Year
  Sex: Female
  Weight: 66 kg

DRUGS (6)
  1. KYMRIAH [Suspect]
     Active Substance: TISAGENLECLEUCEL
     Indication: DIFFUSE LARGE B-CELL LYMPHOMA
     Dosage: ?          OTHER FREQUENCY:ONCE;?
     Route: 041
     Dates: start: 20190603, end: 20190603
  2. ACYCLOVIR. [Concomitant]
     Active Substance: ACYCLOVIR
  3. PROCHLORPERAZINE. [Concomitant]
     Active Substance: PROCHLORPERAZINE
  4. DOCUSATE [Concomitant]
     Active Substance: DOCUSATE
  5. DEXAMETHASONE. [Concomitant]
     Active Substance: DEXAMETHASONE
  6. ONDANSETRON [Concomitant]
     Active Substance: ONDANSETRON

REACTIONS (6)
  - Nervous system disorder [None]
  - Confusional state [None]
  - Mental status changes [None]
  - Cytokine release syndrome [None]
  - Pyrexia [None]
  - Blood pressure decreased [None]

NARRATIVE: CASE EVENT DATE: 20190605
